FAERS Safety Report 4999244-X (Version None)
Quarter: 2006Q2

REPORT INFORMATION
  Report Type: 
  Country: None (occurrence: None)
  Receive Date: 20060509
  Receipt Date: 20060509
  Transmission Date: 20061013
  Serious: Yes (Hospitalization, Other)
  Sender: FDA-Public Use
  Company Number: None

PATIENT
  Sex: Female
  Weight: 84.2 kg

DRUGS (9)
  1. CYCLOPHOSPHAMIDE [Suspect]
     Indication: DIFFUSE LARGE B-CELL LYMPHOMA
     Dosage: 2073 MG
     Dates: start: 20060424, end: 20060424
  2. DOXORUBICIN HCL [Suspect]
     Dosage: 57.6 MG
     Dates: start: 20060420, end: 20060424
  3. ETOPOSIDE [Suspect]
     Dosage: 288 MG
     Dates: start: 20060420, end: 20060424
  4. PREDNISONE TAB [Suspect]
     Dosage: 1150 MG
     Dates: start: 20060420, end: 20060424
  5. RITUXIMAB (MOAB C2B8 ANTI CD20. CHIMERIC) [Concomitant]
     Dosage: 720 MG
     Dates: start: 20060420, end: 20060420
  6. VINCRISTINE SULFATE [Suspect]
     Dosage: 1.6 MG
     Dates: start: 20060420, end: 20060424
  7. COREG [Concomitant]
  8. LASIX [Concomitant]
  9. PLAVIX [Concomitant]

REACTIONS (3)
  - ASTHENIA [None]
  - DEHYDRATION [None]
  - LABORATORY TEST ABNORMAL [None]
